FAERS Safety Report 7499599-0 (Version None)
Quarter: 2011Q2

REPORT INFORMATION
  Report Type: 
  Country: None (occurrence: None)
  Receive Date: 20110504
  Receipt Date: 20110419
  Transmission Date: 20111010
  Serious: Yes (Other)
  Sender: FDA-Public Use
  Company Number: 2011PROUSA00188

PATIENT
  Age: 74 Year
  Sex: Male
  Weight: 143.1 kg

DRUGS (12)
  1. HYDROCODONE (HYDROCODONE) [Concomitant]
  2. AMBEN (ZOLPIDEM TARTRATE) [Concomitant]
  3. POTASSIUM CHLORIDE [Concomitant]
  4. ERGOCALCIFEROL [Concomitant]
  5. ELIGARD [Concomitant]
  6. PROVENGE [Suspect]
     Dosage: 250 ML, SINGLE, INTRAVENOUS
     Route: 042
     Dates: start: 20110210, end: 20110210
  7. PROVENGE [Suspect]
     Dosage: 250 ML, SINGLE, INTRAVENOUS
     Route: 042
     Dates: start: 20110228, end: 20110228
  8. PROVENGE [Suspect]
     Indication: PROSTATE CANCER METASTATIC
     Dosage: 250 ML, SINGLE, INTRAVENOUS
     Route: 042
     Dates: start: 20110113, end: 20110113
  9. MAVIK [Concomitant]
  10. VYTORIN [Concomitant]
  11. FUROSEMIDE [Concomitant]
  12. CASODEX [Concomitant]

REACTIONS (1)
  - THROMBOSIS [None]
